FAERS Safety Report 9558376 (Version 3)
Quarter: 2013Q4

REPORT INFORMATION
  Report Type: Report from Study
  Country: US (occurrence: US)
  Receive Date: 20130926
  Receipt Date: 20131025
  Transmission Date: 20140711
  Serious: Yes (Other)
  Sender: FDA-Public Use
  Company Number: US-ROCHE-1262023

PATIENT
  Age: 59 Year
  Sex: Female

DRUGS (11)
  1. LUCENTIS [Suspect]
     Indication: DIABETIC RETINOPATHY
     Dosage: OD
     Route: 065
     Dates: start: 20130430
  2. LUCENTIS [Suspect]
     Indication: DIABETIC RETINAL OEDEMA
     Dosage: OS
     Route: 065
     Dates: start: 20130529
  3. LUCENTIS [Suspect]
     Route: 065
     Dates: start: 20130625
  4. AVASTIN [Suspect]
     Indication: DIABETIC RETINOPATHY
     Route: 065
     Dates: start: 20130320
  5. AVASTIN [Suspect]
     Indication: DIABETIC RETINAL OEDEMA
     Route: 065
     Dates: start: 20111201
  6. AVASTIN [Suspect]
     Route: 065
     Dates: start: 20110302
  7. CINNAMON [Concomitant]
     Route: 065
  8. COREG [Concomitant]
     Route: 065
  9. LEVEMIR [Concomitant]
     Dosage: UNITS/ML
     Route: 065
  10. VITALITY FOR WOMEN [Concomitant]
  11. AVAPRO [Concomitant]
     Route: 065

REACTIONS (5)
  - Macular oedema [Unknown]
  - Retinal haemorrhage [Unknown]
  - Retinal exudates [Unknown]
  - Vision blurred [Unknown]
  - Visual impairment [Unknown]
